FAERS Safety Report 5590687-2 (Version None)
Quarter: 2008Q1

REPORT INFORMATION
  Report Type: 
  Country: None (occurrence: None)
  Receive Date: 20080110
  Receipt Date: 20080104
  Transmission Date: 20080703
  Serious: Yes (Other)
  Sender: FDA-Public Use
  Company Number: A0700414A

PATIENT
  Age: 70 Year
  Sex: Female

DRUGS (1)
  1. CAFFEINE CITRATE [Suspect]
     Indication: DRUG USE FOR UNKNOWN INDICATION
     Dosage: ORAL
     Route: 048
     Dates: start: 20071217

REACTIONS (2)
  - DRUG TOXICITY [None]
  - HYPERSENSITIVITY [None]
